FAERS Safety Report 23120692 (Version 2)
Quarter: 2024Q1

REPORT INFORMATION
  Report Type: Spontaneous
  Country: US (occurrence: US)
  Receive Date: 20231029
  Receipt Date: 20240328
  Transmission Date: 20240410
  Serious: No
  Sender: FDA-Public Use
  Company Number: US-TEVA-2023-US-2939455

PATIENT
  Sex: Female
  Weight: 112.49 kg

DRUGS (3)
  1. ALBUTEROL [Suspect]
     Active Substance: ALBUTEROL
     Indication: Asthma
     Route: 065
     Dates: start: 202310
  2. ALBUTEROL [Suspect]
     Active Substance: ALBUTEROL
     Route: 065
     Dates: start: 202310
  3. ALBUTEROL [Suspect]
     Active Substance: ALBUTEROL

REACTIONS (5)
  - Chest discomfort [Unknown]
  - Asthma [Unknown]
  - Off label use [Unknown]
  - Chest discomfort [Unknown]
  - Drug ineffective [Unknown]
